FAERS Safety Report 21757000 (Version 1)
Quarter: 2022Q4

REPORT INFORMATION
  Report Type: Spontaneous
  Country: US (occurrence: None)
  Receive Date: 20221220
  Receipt Date: 20221220
  Transmission Date: 20230113
  Serious: Yes (Other)
  Sender: FDA-Public Use
  Company Number: 2022A405227

PATIENT
  Age: 896 Month
  Sex: Female
  Weight: 67.6 kg

DRUGS (1)
  1. BUDESONIDE\FORMOTEROL\GLYCOPYRRONIUM [Suspect]
     Active Substance: BUDESONIDE\FORMOTEROL\GLYCOPYRRONIUM
     Indication: Lung disorder
     Dosage: 160/9/4.8 MCG, 2 INHALATIONS 2 TIMES A DAY
     Route: 055
     Dates: start: 202205

REACTIONS (7)
  - Malignant neoplasm progression [Unknown]
  - Dyspnoea [Unknown]
  - Feeling abnormal [Unknown]
  - Wrong technique in device usage process [Unknown]
  - Drug delivery system malfunction [Unknown]
  - Drug dose omission by device [Unknown]
  - Off label use [Unknown]

NARRATIVE: CASE EVENT DATE: 20220501
